FAERS Safety Report 7823762-X (Version None)
Quarter: 2011Q4

REPORT INFORMATION
  Report Type: 
  Country: None (occurrence: None)
  Receive Date: 20111019
  Receipt Date: 20111012
  Transmission Date: 20120403
  Serious: No
  Sender: FDA-Public Use
  Company Number: US-PFIZER INC-2011226118

PATIENT
  Sex: Female
  Weight: 105 kg

DRUGS (4)
  1. EFFEXOR [Concomitant]
     Dosage: UNK, BID
  2. MEDROXYPROGESTERONE ACETATE [Suspect]
     Indication: CONTRACEPTION
     Dosage: 150 MG ONCE, EVERY 11-13 WEEKS
     Route: 030
     Dates: start: 20110919
  3. LISINOPRIL [Concomitant]
     Indication: HYPERTENSION
     Dosage: UNK, DAILY
  4. HYDROCHLOROTHIAZIDE [Concomitant]
     Indication: HYPERTENSION
     Dosage: UNK, DAILY

REACTIONS (2)
  - LIP SWELLING [None]
  - URTICARIA [None]
